FAERS Safety Report 14074992 (Version 1)
Quarter: 2017Q4

REPORT INFORMATION
  Report Type: Spontaneous
  Country: US (occurrence: US)
  Receive Date: 20171010
  Receipt Date: 20171010
  Transmission Date: 20180321
  Serious: Yes (Hospitalization)
  Sender: FDA-Public Use
  Company Number: US-TEVA-814020USA

PATIENT
  Sex: Female

DRUGS (2)
  1. PRAVASTATIN. [Suspect]
     Active Substance: PRAVASTATIN
     Route: 065
  2. BUPROPION. [Suspect]
     Active Substance: BUPROPION
     Route: 065

REACTIONS (11)
  - Aggression [Unknown]
  - Wrong drug administered [Unknown]
  - Dyspnoea [Unknown]
  - Vomiting [Unknown]
  - Hostility [Unknown]
  - Psychomotor hyperactivity [Unknown]
  - Dry mouth [Unknown]
  - Insomnia [Unknown]
  - Agitation [Unknown]
  - Drug dispensing error [Unknown]
  - Constipation [Unknown]
